FAERS Safety Report 5102220-X (Version None)
Quarter: 2006Q3

REPORT INFORMATION
  Report Type: 
  Country: None (occurrence: None)
  Receive Date: 20060912
  Receipt Date: 20060901
  Transmission Date: 20061208
  Serious: Yes (Hospitalization)
  Sender: FDA-Public Use
  Company Number: 2006PK01824

PATIENT
  Age: 38 Year
  Sex: Female
  Weight: 52 kg

DRUGS (7)
  1. SEROQUEL [Suspect]
     Route: 048
     Dates: start: 20040413, end: 20040414
  2. SEROQUEL [Suspect]
     Route: 048
     Dates: start: 20040415, end: 20040503
  3. SEROQUEL [Suspect]
     Route: 048
     Dates: start: 20040504, end: 20040505
  4. SEROQUEL [Suspect]
     Route: 048
     Dates: start: 20040506, end: 20040510
  5. SEROQUEL [Suspect]
     Route: 048
     Dates: start: 20040511, end: 20040511
  6. DREISAFER [Concomitant]
     Indication: PROPHYLAXIS
     Dates: start: 20040421, end: 20040511
  7. MOVICOL [Concomitant]
     Indication: LAXATIVE SUPPORTIVE CARE
     Dates: start: 20040422, end: 20040511

REACTIONS (1)
  - LEUKOPENIA [None]
